FAERS Safety Report 18452160 (Version 1)
Quarter: 2020Q4

REPORT INFORMATION
  Report Type: Spontaneous
  Country: US (occurrence: US)
  Receive Date: 20201102
  Receipt Date: 20201102
  Transmission Date: 20210114
  Serious: No
  Sender: FDA-Public Use
  Company Number: US-AMGEN-USASP2020175914

PATIENT
  Sex: Male

DRUGS (1)
  1. CORLANOR [Suspect]
     Active Substance: IVABRADINE HYDROCHLORIDE
     Indication: JUNCTIONAL ECTOPIC TACHYCARDIA
     Dosage: 0.9 MILLILITER, TID
     Route: 065
     Dates: start: 2020

REACTIONS (1)
  - Off label use [Unknown]

NARRATIVE: CASE EVENT DATE: 2020
